FAERS Safety Report 7587711-4 (Version None)
Quarter: 2011Q3

REPORT INFORMATION
  Report Type: 
  Country: None (occurrence: None)
  Receive Date: 20110704
  Receipt Date: 20110621
  Transmission Date: 20111222
  Serious: Yes (Other)
  Sender: FDA-Public Use
  Company Number: MX-ELI_LILLY_AND_COMPANY-MX201106008758

PATIENT
  Sex: Male

DRUGS (2)
  1. ANTIHYPERTENSIVES [Concomitant]
  2. CYMBALTA [Suspect]
     Indication: DEPRESSION
     Dosage: 60 MG, UNK

REACTIONS (1)
  - CEREBROVASCULAR ACCIDENT [None]
